FAERS Safety Report 6047190-5 (Version None)
Quarter: 2009Q1

REPORT INFORMATION
  Report Type: 
  Country: None (occurrence: None)
  Receive Date: 20090122
  Receipt Date: 20090107
  Transmission Date: 20090719
  Serious: Yes (Hospitalization)
  Sender: FDA-Public Use
  Company Number: FR-GENENTECH-275568

PATIENT
  Sex: Female

DRUGS (4)
  1. AVASTIN [Suspect]
     Indication: DRUG USE FOR UNKNOWN INDICATION
     Dosage: 5 MG/KG, UNK
     Route: 042
     Dates: start: 20070118
  2. FLUOROURACIL [Suspect]
     Indication: DRUG USE FOR UNKNOWN INDICATION
     Dosage: 2800 MG/M2, UNK
     Route: 042
     Dates: start: 20070118
  3. ERBITUX [Suspect]
     Indication: DRUG USE FOR UNKNOWN INDICATION
     Dosage: 500 MG/M2, UNK
     Route: 042
     Dates: start: 20061107
  4. ELOXATIN [Suspect]
     Indication: DRUG USE FOR UNKNOWN INDICATION
     Dosage: 70 MG/M2, UNK
     Route: 042
     Dates: start: 20070118

REACTIONS (4)
  - ANAEMIA [None]
  - HAEMATURIA [None]
  - PYREXIA [None]
  - VOMITING [None]
